FAERS Safety Report 9313601 (Version 2)
Quarter: 2013Q3

REPORT INFORMATION
  Report Type: Spontaneous
  Country: US (occurrence: US)
  Receive Date: 20130528
  Receipt Date: 20130725
  Transmission Date: 20140515
  Serious: Yes (Hospitalization)
  Sender: FDA-Public Use
  Company Number: US-B.I. PHARMACEUTICALS,INC./RIDGEFIELD-2013-BI-14160BP

PATIENT
  Age: 59 Year
  Sex: Female

DRUGS (19)
  1. SPIRIVA [Suspect]
     Indication: CHRONIC OBSTRUCTIVE PULMONARY DISEASE
     Dosage: 18 MCG
     Route: 055
     Dates: start: 2008
  2. MULTAQ [Concomitant]
     Indication: CARDIAC DISORDER
     Dosage: 800 MG
     Route: 048
     Dates: start: 2012
  3. ASPIRIN [Concomitant]
     Dosage: 81 MG
     Route: 048
  4. WELLBUTRIN [Concomitant]
     Indication: DEPRESSION
     Dosage: 450 MG
     Route: 048
  5. CALCIUM + D [Concomitant]
     Dosage: 1500 MG
     Route: 048
  6. EPLERENONE [Concomitant]
     Dosage: 25 MG
     Route: 048
  7. FENTANYL [Concomitant]
     Indication: INTERVERTEBRAL DISC PROTRUSION
     Dosage: FORM: PATCH
     Route: 061
  8. ADVAIR [Concomitant]
     Indication: BRONCHITIS CHRONIC
     Dosage: STRENGTH: 250/50 MG: DAILY DOSE: 500/100 MG
     Route: 055
  9. GABAPENTIN [Concomitant]
     Indication: INTERVERTEBRAL DISC PROTRUSION
     Dosage: 1800 MG
     Route: 048
  10. GABAPENTIN [Concomitant]
     Indication: INTERVERTEBRAL DISC PROTRUSION
     Dosage: 1800 MG
     Route: 048
  11. FISH OIL [Concomitant]
     Dosage: 1000 MG
     Route: 048
  12. PROTONIX [Concomitant]
     Indication: GASTROOESOPHAGEAL REFLUX DISEASE
     Dosage: 40 MG
     Route: 048
  13. ZOFRAN [Concomitant]
     Indication: NAUSEA
     Route: 048
  14. PERCOCET [Concomitant]
     Indication: INTERVERTEBRAL DISC PROTRUSION
     Dosage: STRENTH: 10/325 MG: DOSE:30/975 MG
     Route: 048
  15. KLORCON [Concomitant]
     Dosage: 20 MEQ
     Route: 048
  16. XANAFLEX [Concomitant]
     Dosage: 8 MG
     Route: 048
  17. LASIX [Concomitant]
     Indication: CARDIAC FAILURE CONGESTIVE
     Dosage: 40 MG
     Route: 048
  18. TRAZADONE [Concomitant]
     Indication: DEPRESSION
     Dosage: 175 MG
     Route: 048
  19. PLAVIX [Concomitant]
     Dosage: 75 MG
     Route: 048

REACTIONS (10)
  - Arterial occlusive disease [Recovered/Resolved]
  - Pneumonia [Recovered/Resolved]
  - Heart injury [Recovered/Resolved]
  - Confusional state [Not Recovered/Not Resolved]
  - Memory impairment [Not Recovered/Not Resolved]
  - Haematoma [Not Recovered/Not Resolved]
  - Blood pressure decreased [Recovered/Resolved]
  - Rash [Recovered/Resolved]
  - Rash [Recovered/Resolved]
  - Rash [Recovered/Resolved]
